FAERS Safety Report 18231537 (Version 1)
Quarter: 2020Q3

REPORT INFORMATION
  Report Type: Spontaneous
  Country: ES (occurrence: ES)
  Receive Date: 20200904
  Receipt Date: 20200904
  Transmission Date: 20201103
  Serious: Yes (Other)
  Sender: FDA-Public Use
  Company Number: ALC2020ES006938

PATIENT

DRUGS (1)
  1. COLIRCUSI CICLOPLEJICO [Suspect]
     Active Substance: CYCLOPENTOLATE HYDROCHLORIDE
     Indication: VITREOUS DETACHMENT
     Dosage: 1 GOTA EN CADA OJO CADA 15 MINUTOS
     Route: 047
     Dates: start: 20200821, end: 20200821

REACTIONS (7)
  - Paraesthesia [Recovered/Resolved]
  - Nausea [Recovered/Resolved]
  - Hallucination [Recovered/Resolved]
  - Disturbance in attention [Recovered/Resolved]
  - Ataxia [Recovered/Resolved]
  - Dizziness [Recovered/Resolved]
  - Somnolence [Recovered/Resolved]

NARRATIVE: CASE EVENT DATE: 20200821
